FAERS Safety Report 21633972 (Version 1)
Quarter: 2022Q4

REPORT INFORMATION
  Report Type: Spontaneous
  Country: JP (occurrence: JP)
  Receive Date: 20221123
  Receipt Date: 20221123
  Transmission Date: 20230113
  Serious: Yes (Hospitalization, Other)
  Sender: FDA-Public Use
  Company Number: JP-Indoco-000361

PATIENT
  Age: 80 Year
  Sex: Male
  Weight: 48 kg

DRUGS (3)
  1. APIXABAN [Suspect]
     Active Substance: APIXABAN
     Indication: Atrial fibrillation
     Route: 048
  2. ENALAPRIL [Concomitant]
     Active Substance: ENALAPRIL
     Indication: Hypertension
  3. ROSUVASTATIN [Concomitant]
     Active Substance: ROSUVASTATIN
     Indication: Dyslipidaemia
     Dosage: 2.5 MG ONCE DAILY

REACTIONS (3)
  - Pulmonary alveolar haemorrhage [Recovered/Resolved]
  - Respiratory failure [Recovered/Resolved]
  - Anaemia [Recovered/Resolved]
